FAERS Safety Report 12657546 (Version 2)
Quarter: 2016Q3

REPORT INFORMATION
  Report Type: Spontaneous
  Country: RU (occurrence: RU)
  Receive Date: 20160816
  Receipt Date: 20160906
  Transmission Date: 20161109
  Serious: Yes (Life-Threatening)
  Sender: FDA-Public Use
  Company Number: RU-CONCORDIA PHARMACEUTICALS INC.-CO-PL-RU-2016-435

PATIENT
  Age: 42 Year
  Sex: Female

DRUGS (1)
  1. PLAQUENIL [Suspect]
     Active Substance: HYDROXYCHLOROQUINE SULFATE
     Indication: PRODUCT USED FOR UNKNOWN INDICATION
     Route: 048

REACTIONS (2)
  - Lip oedema [Recovered/Resolved]
  - Dyspnoea [Recovered/Resolved]
